FAERS Safety Report 24648662 (Version 5)
Quarter: 2025Q4

REPORT INFORMATION
  Report Type: Spontaneous
  Country: CA (occurrence: CA)
  Receive Date: 20241121
  Receipt Date: 20251027
  Transmission Date: 20260118
  Serious: Yes (Hospitalization, Disabling, Other)
  Sender: HLS THERAPEUTICS
  Company Number: CA-HLS-202402866

PATIENT
  Sex: Female

DRUGS (58)
  1. CLOZAPINE [Suspect]
     Active Substance: CLOZAPINE
     Indication: Schizoaffective disorder
     Dosage: 1 EVERY 1 DAYS?AMOUNT: 600 MILLIGRAM
     Route: 065
  2. CLOZAPINE [Suspect]
     Active Substance: CLOZAPINE
     Indication: Schizoaffective disorder
     Dosage: 1 EVERY 2 DAYS?AMOUNT: 500 MILLIGRAM?TABLETS DOSAGE FORM
     Route: 065
  3. CLOZAPINE [Suspect]
     Active Substance: CLOZAPINE
     Indication: Schizoaffective disorder
     Dosage: 1 EVERY 2 DAYS?AMOUNT: 525 MILLIGRAM
     Route: 065
  4. CLOZAPINE [Suspect]
     Active Substance: CLOZAPINE
     Indication: Schizoaffective disorder
     Dosage: 400.0 MILLIGRAM?EVERY 1 DAYS
     Route: 065
  5. CLOZAPINE [Suspect]
     Active Substance: CLOZAPINE
     Indication: Schizoaffective disorder
     Route: 065
  6. LORAZEPAM [Suspect]
     Active Substance: LORAZEPAM
     Indication: Schizoaffective disorder
     Dosage: 3 EVERY 1 DAYS?AMOUNT: 1 MILLIGRAM?NOT SPECIFIED DOSAGE FORM
     Route: 065
  7. LORAZEPAM [Suspect]
     Active Substance: LORAZEPAM
     Indication: Schizoaffective disorder
     Route: 065
  8. LORAZEPAM [Suspect]
     Active Substance: LORAZEPAM
     Indication: Schizoaffective disorder
     Dosage: 1.0 MILLIGRAM 2 EVERY 1 DAYS
     Route: 065
  9. PERPHENAZINE [Suspect]
     Active Substance: PERPHENAZINE
     Indication: Schizoaffective disorder
     Dosage: NOT SPECIFIED DOSAGE FORM
     Route: 065
  10. QUETIAPINE [Suspect]
     Active Substance: QUETIAPINE
     Indication: Schizoaffective disorder
     Route: 065
  11. QUETIAPINE [Suspect]
     Active Substance: QUETIAPINE
     Indication: Schizoaffective disorder
     Dosage: 400.0 MILLIGRAM? EVERY 1 DAYS
     Route: 065
  12. QUETIAPINE [Suspect]
     Active Substance: QUETIAPINE
     Indication: Schizoaffective disorder
     Dosage: TABLETS DOSAGE FORM
     Route: 065
  13. SERTRALINE [Suspect]
     Active Substance: SERTRALINE HYDROCHLORIDE
     Indication: Schizoaffective disorder
     Dosage: 1 EVERY 1 DAYS?AMOUNT: 125 MILLIGRAM?CAPSULES DOSAGE FORM
     Route: 065
  14. SERTRALINE [Suspect]
     Active Substance: SERTRALINE HYDROCHLORIDE
     Indication: Schizoaffective disorder
     Route: 065
  15. SERTRALINE [Suspect]
     Active Substance: SERTRALINE HYDROCHLORIDE
     Indication: Schizoaffective disorder
     Dosage: 200.0 MILLIGRAM ?EVERY 1 DAYS
     Route: 065
  16. SERTRALINE [Suspect]
     Active Substance: SERTRALINE HYDROCHLORIDE
     Indication: Schizoaffective disorder
     Dosage: CAPSULES UNKNOWN ?175.0 MILLIGRAM EVERY 1 DAYS
     Route: 065
  17. PALIPERIDONE [Suspect]
     Active Substance: PALIPERIDONE
     Indication: Schizoaffective disorder
     Route: 065
  18. OLANZAPINE [Suspect]
     Active Substance: OLANZAPINE
     Indication: Schizoaffective disorder
     Dosage: NOT SPECIFIED UNKNOWN ?20.0 MILLIGRAM EVERY 1 DAYS
     Route: 065
  19. ARIPIPRAZOLE [Suspect]
     Active Substance: ARIPIPRAZOLE
     Indication: Schizoaffective disorder
     Route: 065
  20. ARIPIPRAZOLE [Suspect]
     Active Substance: ARIPIPRAZOLE
     Indication: Generalised anxiety disorder
     Dosage: 1 EVERY 1 DAYS?AMOUNT: 400 MILLIGRAM?TABLETS DOSAGE FORM
     Route: 065
  21. ARIPIPRAZOLE [Suspect]
     Active Substance: ARIPIPRAZOLE
     Indication: Schizoaffective disorder
     Dosage: 1 EVERY 1 DAYS?AMOUNT: 400 MILLIGRAM?TABLETS DOSAGE FORM
     Route: 065
  22. ARIPIPRAZOLE [Suspect]
     Active Substance: ARIPIPRAZOLE
     Indication: Major depression
     Dosage: 1 EVERY 1 DAYS?AMOUNT: 400 MILLIGRAM?TABLETS DOSAGE FORM
     Route: 065
  23. ARIPIPRAZOLE [Suspect]
     Active Substance: ARIPIPRAZOLE
     Indication: Generalised anxiety disorder
     Dosage: 2 EVERY 1 DAYS?AMOUNT: 1 MILLIGRAM?NOT SPECIFIED DOSAGE FORM
     Route: 065
  24. ARIPIPRAZOLE [Suspect]
     Active Substance: ARIPIPRAZOLE
     Indication: Schizoaffective disorder
     Dosage: 2 EVERY 1 DAYS?AMOUNT: 1 MILLIGRAM?NOT SPECIFIED DOSAGE FORM
     Route: 065
  25. ARIPIPRAZOLE [Suspect]
     Active Substance: ARIPIPRAZOLE
     Indication: Major depression
     Dosage: 2 EVERY 1 DAYS?AMOUNT: 1 MILLIGRAM?NOT SPECIFIED DOSAGE FORM
     Route: 065
  26. ARIPIPRAZOLE [Suspect]
     Active Substance: ARIPIPRAZOLE
     Indication: Generalised anxiety disorder
     Dosage: NOT SPECIFIED DOSAGE FORM
     Route: 065
  27. ARIPIPRAZOLE [Suspect]
     Active Substance: ARIPIPRAZOLE
     Indication: Schizoaffective disorder
     Dosage: NOT SPECIFIED DOSAGE FORM
     Route: 065
  28. ARIPIPRAZOLE [Suspect]
     Active Substance: ARIPIPRAZOLE
     Indication: Major depression
     Dosage: NOT SPECIFIED DOSAGE FORM
     Route: 065
  29. OLANZAPINE [Suspect]
     Active Substance: OLANZAPINE
     Indication: Schizoaffective disorder
     Dosage: 1 EVERY 1 DAYS?AMOUNT: 20 MILLIGRAM?NOT SPECIFIED DOSAGE FORM
     Route: 065
  30. PALIPERIDONE [Suspect]
     Active Substance: PALIPERIDONE
     Indication: Schizoaffective disorder
     Route: 065
  31. QUETIAPINE FUMARATE [Suspect]
     Active Substance: QUETIAPINE FUMARATE
     Indication: Generalised anxiety disorder
     Dosage: 1 EVERY 1 DAYS?AMOUNT: 175 MILLIGRAM?CAPSULES DOSAGE FORM
     Route: 065
  32. QUETIAPINE FUMARATE [Suspect]
     Active Substance: QUETIAPINE FUMARATE
     Indication: Schizoaffective disorder
     Dosage: 1 EVERY 1 DAYS?AMOUNT: 175 MILLIGRAM?CAPSULES DOSAGE FORM
     Route: 065
  33. QUETIAPINE FUMARATE [Suspect]
     Active Substance: QUETIAPINE FUMARATE
     Indication: Major depression
     Dosage: 1 EVERY 1 DAYS?AMOUNT: 175 MILLIGRAM?CAPSULES DOSAGE FORM
     Route: 065
  34. QUETIAPINE FUMARATE [Suspect]
     Active Substance: QUETIAPINE FUMARATE
     Indication: Generalised anxiety disorder
     Dosage: 1 EVERY 1 DAYS?AMOUNT: 200 MILLIGRAM?CAPSULES DOSAGE FORM
     Route: 065
  35. QUETIAPINE FUMARATE [Suspect]
     Active Substance: QUETIAPINE FUMARATE
     Indication: Schizoaffective disorder
     Dosage: 1 EVERY 1 DAYS?AMOUNT: 200 MILLIGRAM?CAPSULES DOSAGE FORM
     Route: 065
  36. QUETIAPINE FUMARATE [Suspect]
     Active Substance: QUETIAPINE FUMARATE
     Indication: Major depression
     Dosage: 1 EVERY 1 DAYS?AMOUNT: 200 MILLIGRAM?CAPSULES DOSAGE FORM
     Route: 065
  37. QUETIAPINE FUMARATE [Suspect]
     Active Substance: QUETIAPINE FUMARATE
     Indication: Generalised anxiety disorder
     Dosage: 1 EVERY 1 DAYS?AMOUNT: 400 MILLIGRAM
     Route: 065
  38. QUETIAPINE FUMARATE [Suspect]
     Active Substance: QUETIAPINE FUMARATE
     Indication: Schizoaffective disorder
     Dosage: 1 EVERY 1 DAYS?AMOUNT: 400 MILLIGRAM
     Route: 065
  39. QUETIAPINE FUMARATE [Suspect]
     Active Substance: QUETIAPINE FUMARATE
     Indication: Major depression
     Dosage: 1 EVERY 1 DAYS?AMOUNT: 400 MILLIGRAM
     Route: 065
  40. QUETIAPINE FUMARATE [Suspect]
     Active Substance: QUETIAPINE FUMARATE
     Indication: Generalised anxiety disorder
     Route: 065
  41. QUETIAPINE FUMARATE [Suspect]
     Active Substance: QUETIAPINE FUMARATE
     Indication: Schizoaffective disorder
     Route: 065
  42. QUETIAPINE FUMARATE [Suspect]
     Active Substance: QUETIAPINE FUMARATE
     Indication: Major depression
     Route: 065
  43. EMPAGLIFLOZIN [Concomitant]
     Active Substance: EMPAGLIFLOZIN
     Indication: Type 2 diabetes mellitus
     Dosage: TABLETS DOSAGE FORM
     Route: 048
  44. LINAGLIPTIN [Concomitant]
     Active Substance: LINAGLIPTIN
     Indication: Type 2 diabetes mellitus
     Dosage: 2 EVERY 1 DAYS?AMOUNT: 1 MILLIGRAM?NOT SPECIFIED DOSAGE FORM
     Route: 065
  45. LINAGLIPTIN [Concomitant]
     Active Substance: LINAGLIPTIN
     Indication: Type 2 diabetes mellitus
     Route: 048
  46. METFORMIN [Concomitant]
     Active Substance: METFORMIN HYDROCHLORIDE
     Indication: Type 2 diabetes mellitus
     Dosage: 1 EVERY 24 HOURS?AMOUNT: 175 MILLIGRAM?CAPSULES DOSAGE FORM
     Route: 065
  47. METFORMIN [Concomitant]
     Active Substance: METFORMIN HYDROCHLORIDE
     Indication: Type 2 diabetes mellitus
     Dosage: 1 EVERY 24 HOURS?AMOUNT: 2 MILLIGRAM?NOT SPECIFIED DOSAGE FORM
     Route: 065
  48. METFORMIN [Concomitant]
     Active Substance: METFORMIN HYDROCHLORIDE
     Indication: Type 2 diabetes mellitus
     Dosage: 1 EVERY 24 HOURS?AMOUNT: 200 MILLIGRAM?CAPSULES DOSAGE FORM
     Route: 065
  49. METFORMIN [Concomitant]
     Active Substance: METFORMIN HYDROCHLORIDE
     Indication: Type 2 diabetes mellitus
     Route: 048
  50. SERTRALINE HYDROCHLORIDE [Suspect]
     Active Substance: SERTRALINE HYDROCHLORIDE
     Indication: Schizoaffective disorder
     Dosage: 1 EVERY 24 HOURS?AMOUNT: 125 MILLIGRAM
     Route: 065
  51. CHLORPROMAZINE [Suspect]
     Active Substance: CHLORPROMAZINE
     Indication: Schizoaffective disorder
     Dosage: AMOUNT: 500 MILLIGRAM?TABLETS DOSAGE FORM
     Route: 065
  52. CHLORPROMAZINE [Suspect]
     Active Substance: CHLORPROMAZINE
     Indication: Schizoaffective disorder
     Dosage: AMOUNT: 525 MILLIGRAM
     Route: 065
  53. CHLORPROMAZINE [Suspect]
     Active Substance: CHLORPROMAZINE
     Indication: Schizoaffective disorder
     Route: 065
  54. HALOPERIDOL [Suspect]
     Active Substance: HALOPERIDOL
     Indication: Product used for unknown indication
     Dosage: AMOUNT: 125 MILLIGRAM?CAPSULES DOSAGE FORM
     Route: 065
  55. HALOPERIDOL [Suspect]
     Active Substance: HALOPERIDOL
     Indication: Product used for unknown indication
     Dosage: 3 EVERY 1 DAYS?AMOUNT: 1 MILLIGRAM?NOT SPECIFIED DOSAGE FORM
     Route: 065
  56. HALOPERIDOL [Suspect]
     Active Substance: HALOPERIDOL
     Indication: Product used for unknown indication
     Route: 065
  57. HALOPERIDOL [Suspect]
     Active Substance: HALOPERIDOL
     Indication: Product used for unknown indication
     Dosage: NOT SPECIFIED DOSAGE FORM
     Route: 065
  58. THIORIDAZINE [Suspect]
     Active Substance: THIORIDAZINE
     Indication: Product used for unknown indication
     Dosage: SUSPENSION ORAL DOSAGE FORM
     Route: 065

REACTIONS (8)
  - Apraxia [Recovering/Resolving]
  - Drug ineffective [Recovering/Resolving]
  - Dyskinesia [Recovering/Resolving]
  - Dystonia [Recovering/Resolving]
  - Myoclonus [Recovering/Resolving]
  - Off label use [Recovering/Resolving]
  - Parkinsonism [Recovering/Resolving]
  - Tardive dyskinesia [Recovering/Resolving]
